FAERS Safety Report 24435493 (Version 1)
Quarter: 2024Q4

REPORT INFORMATION
  Report Type: Spontaneous
  Country: CN (occurrence: CN)
  Receive Date: 20241015
  Receipt Date: 20241015
  Transmission Date: 20250115
  Serious: Yes (Other)
  Sender: ABBVIE
  Company Number: CN-ABBVIE-5954670

PATIENT
  Age: 52 Year
  Sex: Male
  Weight: 63 kg

DRUGS (5)
  1. PREDNISOLONE ACETATE [Suspect]
     Active Substance: PREDNISOLONE ACETATE
     Indication: Nephrotic syndrome
     Dosage: 30 MILLIGRAM,?LAST ADMIN DATE 2024
     Route: 065
     Dates: start: 20240402
  2. PREDNISOLONE ACETATE [Suspect]
     Active Substance: PREDNISOLONE ACETATE
     Indication: Glomerulonephritis membranous
     Dosage: DOSE WAS REDUCED, LAST ADMIN DATE 2024
     Route: 065
     Dates: start: 20240825
  3. PREDNISOLONE ACETATE [Suspect]
     Active Substance: PREDNISOLONE ACETATE
     Dosage: START DATE 2024
     Route: 065
     Dates: start: 2024, end: 20240930
  4. METHYLPREDNISOLONE [Concomitant]
     Active Substance: METHYLPREDNISOLONE
     Indication: Nephrotic syndrome
     Route: 042
     Dates: start: 20240402
  5. TACROLIMUS [Concomitant]
     Active Substance: TACROLIMUS
     Indication: Product used for unknown indication
     Route: 048
     Dates: start: 20240408

REACTIONS (7)
  - Steroid diabetes [Unknown]
  - Weight decreased [Unknown]
  - Fatigue [Unknown]
  - Decreased appetite [Unknown]
  - Polydipsia [Unknown]
  - Polyuria [Unknown]
  - Dry mouth [Unknown]

NARRATIVE: CASE EVENT DATE: 20240901
